FAERS Safety Report 9398614 (Version 1)
Quarter: 2013Q3

REPORT INFORMATION
  Report Type: Spontaneous
  Country: DE (occurrence: DE)
  Receive Date: 20130712
  Receipt Date: 20130712
  Transmission Date: 20140515
  Serious: Yes (Other)
  Sender: FDA-Public Use
  Company Number: GXKR2013DE002358

PATIENT
  Age: 41 Year
  Sex: Female

DRUGS (1)
  1. TRAMADOL 1A PHARMA [Suspect]
     Indication: BACK PAIN
     Dosage: 10 DRP, ONCE/SINGLE
     Route: 048

REACTIONS (1)
  - Circulatory collapse [Unknown]
